FAERS Safety Report 6055615-4 (Version None)
Quarter: 2009Q1

REPORT INFORMATION
  Report Type: 
  Country: None (occurrence: None)
  Receive Date: 20090128
  Receipt Date: 20090123
  Transmission Date: 20090719
  Serious: Yes (Other)
  Sender: FDA-Public Use
  Company Number: US-GILEAD-2009-0019971

PATIENT
  Sex: Female
  Weight: 63.56 kg

DRUGS (9)
  1. LETAIRIS [Suspect]
     Indication: PULMONARY ARTERIAL HYPERTENSION
     Route: 048
     Dates: start: 20080716, end: 20090102
  2. ZETIA [Concomitant]
  3. ASPIRIN [Concomitant]
  4. LIPITOR [Concomitant]
  5. SINGULAIR [Concomitant]
  6. LEVOTHYROXINE SODIUM [Concomitant]
  7. PREDNISONE [Concomitant]
  8. NEXIUM [Concomitant]
  9. CENTRUM [Concomitant]

REACTIONS (5)
  - ABDOMINAL DISTENSION [None]
  - DYSPNOEA [None]
  - EAR TUBE INSERTION [None]
  - OEDEMA PERIPHERAL [None]
  - SINUSITIS [None]
